FAERS Safety Report 6503029-2 (Version None)
Quarter: 2009Q4

REPORT INFORMATION
  Report Type: 
  Country: None (occurrence: None)
  Receive Date: 20091217
  Receipt Date: 20091210
  Transmission Date: 20100525
  Serious: Yes (Death, Other)
  Sender: FDA-Public Use
  Company Number: GB-ROCHE-661003

PATIENT
  Age: 82 Year
  Sex: Male

DRUGS (1)
  1. TAMIFLU [Suspect]
     Route: 065
     Dates: start: 20090829

REACTIONS (3)
  - DUODENAL ULCER PERFORATION [None]
  - MALAISE [None]
  - VOMITING [None]
